FAERS Safety Report 23194461 (Version 4)
Quarter: 2023Q4

REPORT INFORMATION
  Report Type: Spontaneous
  Country: FR (occurrence: FR)
  Receive Date: 20231117
  Receipt Date: 20231214
  Transmission Date: 20240110
  Serious: Yes (Death)
  Sender: FDA-Public Use
  Company Number: FR-CAMURUS AB-FR-CAM-23-00823

PATIENT
  Age: 54 Year
  Sex: Female
  Weight: 44 kg

DRUGS (7)
  1. BUPRENORPHINE [Suspect]
     Active Substance: BUPRENORPHINE
     Indication: Drug dependence
     Dosage: 8 MILLIGRAM, WEEKLY
     Route: 058
     Dates: start: 20230712, end: 20231012
  2. QUETIAPINE [Suspect]
     Active Substance: QUETIAPINE
     Indication: Depression
     Dosage: 50 MILLIGRAM, QD
     Route: 048
     Dates: start: 20221109, end: 20231012
  3. OXAZEPAM [Suspect]
     Active Substance: OXAZEPAM
     Indication: Anxiety
     Dosage: 25 MILLIGRAM, QID
     Route: 048
     Dates: start: 20221109, end: 20231012
  4. PAROXETINE HYDROCHLORIDE [Suspect]
     Active Substance: PAROXETINE HYDROCHLORIDE\PAROXETINE HYDROCHLORIDE ANHYDROUS
     Indication: Anxiety
     Dosage: 20 MILLIGRAM, QD
     Route: 048
     Dates: start: 20221109, end: 20231012
  5. CYAMEMAZINE [Concomitant]
     Active Substance: CYAMEMAZINE
     Indication: Anxiety
     Dosage: 25 MILLIGRAM, TID
     Route: 065
     Dates: start: 20221109
  6. MIRTAZAPINE [Concomitant]
     Active Substance: MIRTAZAPINE
     Indication: Anxiety
     Dosage: 15 MILLIGRAM, QD
     Route: 048
     Dates: start: 20221109, end: 20231012
  7. MIRTAZAPINE [Concomitant]
     Active Substance: MIRTAZAPINE
     Indication: Depression

REACTIONS (4)
  - Sudden death [Fatal]
  - Chronic obstructive pulmonary disease [Fatal]
  - Dyspnoea [Fatal]
  - Potentiating drug interaction [Fatal]

NARRATIVE: CASE EVENT DATE: 20231011
